FAERS Safety Report 5304267-7 (Version None)
Quarter: 2007Q2

REPORT INFORMATION
  Report Type: 
  Country: None (occurrence: None)
  Receive Date: 20070423
  Receipt Date: 20070411
  Transmission Date: 20071010
  Serious: Yes (Hospitalization)
  Sender: FDA-Public Use
  Company Number: PHBS2007BE06479

PATIENT
  Age: 64 Year
  Sex: Female

DRUGS (5)
  1. LAMISIL [Suspect]
     Indication: ORAL CANDIDIASIS
     Dosage: 250 MG/DAY
     Route: 048
     Dates: start: 20070310, end: 20070326
  2. SPIRIVA [Concomitant]
  3. SYMBICORT [Concomitant]
  4. MIRAPEXIN [Concomitant]
  5. ELTHYRONE [Concomitant]

REACTIONS (6)
  - COUGH [None]
  - CYTOMEGALOVIRUS ANTIBODY POSITIVE [None]
  - CYTOMEGALOVIRUS INFECTION [None]
  - LYMPHADENOPATHY [None]
  - PYREXIA [None]
  - RASH [None]
